FAERS Safety Report 8844097 (Version 2)
Quarter: 2013Q2

REPORT INFORMATION
  Report Type: Report from Study
  Country: CA (occurrence: CA)
  Receive Date: 20121016
  Receipt Date: 20130607
  Transmission Date: 20140414
  Serious: Yes (Hospitalization, Other)
  Sender: FDA-Public Use
  Company Number: PHHY2011CA15037

PATIENT
  Sex: Female

DRUGS (8)
  1. SANDOSTATIN LAR [Suspect]
     Indication: ACROMEGALY
     Dosage: 10 MG, EVERY 4 WEEKS
     Route: 030
     Dates: start: 20100818
  2. SANDOSTATIN LAR [Suspect]
     Dosage: 10 MG, EVERY 5 WEEKS
     Route: 030
  3. SANDOSTATIN LAR [Suspect]
     Dosage: 10 MG, EVERY 30 DAYS
     Route: 030
     Dates: start: 2010
  4. TYLENOL [Concomitant]
     Dosage: UNK UKN, UNK
  5. ATHENOL [Concomitant]
     Dosage: UNK UKN, UNK
  6. CALCIUM [Concomitant]
     Dosage: UNK UKN, UNK
  7. VITAMIN D [Concomitant]
     Dosage: UNK UKN, UNK
  8. VITALUX                            /00322001/ [Concomitant]
     Dosage: UNK UKN, UNK

REACTIONS (4)
  - Fall [Unknown]
  - Diarrhoea [Recovered/Resolved]
  - Hot flush [Unknown]
  - Feeling abnormal [Unknown]
